FAERS Safety Report 7174754-8 (Version None)
Quarter: 2010Q4

REPORT INFORMATION
  Report Type: 
  Country: None (occurrence: None)
  Receive Date: 20101202
  Receipt Date: 20101117
  Transmission Date: 20110411
  Serious: Yes (Hospitalization, Other)
  Sender: FDA-Public Use
  Company Number: TPG2010A00669

PATIENT
  Age: 73 Year
  Sex: Female

DRUGS (8)
  1. LANSOPRAZOLE [Suspect]
     Indication: GASTROOESOPHAGEAL REFLUX DISEASE
     Dosage: 15 MG (15 MG, 1 IN 1 D) ORAL
     Route: 048
  2. PHENPROCOUMON [Concomitant]
  3. PRAVASTATIN [Concomitant]
  4. CISAPRIDE [Concomitant]
  5. CALCIUM [Concomitant]
  6. COLECALCIFEROL [Concomitant]
  7. HYDROCHLOROTHIAZIDE [Concomitant]
  8. AMILORIDE HYDROCHLORIDE [Concomitant]

REACTIONS (8)
  - ANTI-HBC ANTIBODY POSITIVE [None]
  - ANTI-HBE ANTIBODY POSITIVE [None]
  - ANTI-HBS ANTIBODY POSITIVE [None]
  - BLOOD PRESSURE INCREASED [None]
  - GLOMERULONEPHRITIS ACUTE [None]
  - LEUKOCYTOCLASTIC VASCULITIS [None]
  - RASH MACULAR [None]
  - REFUSAL OF TREATMENT BY PATIENT [None]
